FAERS Safety Report 6321710-5 (Version None)
Quarter: 2009Q3

REPORT INFORMATION
  Report Type: 
  Country: None (occurrence: None)
  Receive Date: 20090821
  Receipt Date: 20090821
  Transmission Date: 20100115
  Serious: Yes (Life-Threatening, Hospitalization)
  Sender: FDA-Public Use
  Company Number: None

PATIENT
  Sex: Female
  Weight: 81.6475 kg

DRUGS (2)
  1. LYRICA [Suspect]
     Indication: FIBROMYALGIA
     Dosage: 75MG 1/1 AT H.S. PO ONLY TOOK ONE
     Route: 048
  2. LYRICA [Suspect]
     Indication: POLYCHONDRITIS
     Dosage: 75MG 1/1 AT H.S. PO ONLY TOOK ONE
     Route: 048

REACTIONS (7)
  - CONVULSION [None]
  - FEELING ABNORMAL [None]
  - HUNGER [None]
  - INSOMNIA [None]
  - MUSCLE TWITCHING [None]
  - RESTLESS LEGS SYNDROME [None]
  - THIRST [None]
